FAERS Safety Report 10020595 (Version 1)
Quarter: 2014Q1

REPORT INFORMATION
  Report Type: Report from Study
  Country: US (occurrence: US)
  Receive Date: 20140319
  Receipt Date: 20140319
  Transmission Date: 20141002
  Serious: Yes (Other)
  Sender: FDA-Public Use
  Company Number: US-ROCHE-1363584

PATIENT
  Sex: Female
  Weight: 138.47 kg

DRUGS (2)
  1. KADCYLA [Suspect]
     Indication: BREAST CANCER
     Route: 042
     Dates: start: 201310, end: 20131228
  2. GLIBENCLAMIDE [Concomitant]
     Indication: DIABETES MELLITUS
     Route: 048

REACTIONS (4)
  - Dysphagia [Not Recovered/Not Resolved]
  - Burning sensation [Unknown]
  - Choking [Unknown]
  - Peripheral coldness [Unknown]
